FAERS Safety Report 23698275 (Version 1)
Quarter: 2024Q2

REPORT INFORMATION
  Report Type: Spontaneous
  Country: US (occurrence: None)
  Receive Date: 20240402
  Receipt Date: 20240402
  Transmission Date: 20240715
  Serious: No
  Sender: FDA-Public Use
  Company Number: None

PATIENT
  Sex: 0

DRUGS (1)
  1. ENTYVIO [Suspect]
     Active Substance: VEDOLIZUMAB
     Dosage: INTRAVENOUS DRIP
     Route: 041
     Dates: start: 20240402, end: 20240402

REACTIONS (2)
  - Visual impairment [None]
  - Infusion related reaction [None]

NARRATIVE: CASE EVENT DATE: 20240402
